FAERS Safety Report 21959328 (Version 1)
Quarter: 2023Q1

REPORT INFORMATION
  Report Type: Spontaneous
  Country: CN (occurrence: CN)
  Receive Date: 20230206
  Receipt Date: 20230206
  Transmission Date: 20230418
  Serious: Yes (Other)
  Sender: FDA-Public Use
  Company Number: CN-009507513-2302CHN000580

PATIENT
  Age: 51 Year
  Sex: Male
  Weight: 62.3 kg

DRUGS (4)
  1. CILASTATIN SODIUM\IMIPENEM [Suspect]
     Active Substance: CILASTATIN SODIUM\IMIPENEM
     Indication: Pyrexia
     Dosage: 0.5G, Q6H
     Route: 041
     Dates: start: 20230119, end: 20230127
  2. VANCOMYCIN HYDROCHLORIDE [Suspect]
     Active Substance: VANCOMYCIN HYDROCHLORIDE
     Indication: Pyrexia
     Dosage: 1G, Q12H
     Route: 041
     Dates: start: 20230121, end: 20230127
  3. SODIUM CHLORIDE [Concomitant]
     Active Substance: SODIUM CHLORIDE
     Indication: Medication dilution
     Dosage: 100ML, Q6H
     Route: 041
     Dates: start: 20230119, end: 20230127
  4. SODIUM CHLORIDE [Concomitant]
     Active Substance: SODIUM CHLORIDE
     Dosage: 250ML, Q12H
     Route: 041
     Dates: start: 20230121, end: 20230127

REACTIONS (2)
  - Drug eruption [Recovering/Resolving]
  - Rash pruritic [Recovering/Resolving]

NARRATIVE: CASE EVENT DATE: 20230126
